FAERS Safety Report 19435669 (Version 1)
Quarter: 2021Q2

REPORT INFORMATION
  Report Type: Report from Study
  Country: PL (occurrence: PL)
  Receive Date: 20210618
  Receipt Date: 20210618
  Transmission Date: 20210717
  Serious: Yes (Other)
  Sender: FDA-Public Use
  Company Number: NVSC2021PL128775

PATIENT

DRUGS (1)
  1. METFORMIN [Suspect]
     Active Substance: METFORMIN HYDROCHLORIDE
     Indication: PRODUCT USED FOR UNKNOWN INDICATION
     Dosage: UNK
     Route: 065

REACTIONS (15)
  - Pollakiuria [Unknown]
  - Lethargy [Unknown]
  - Nonalcoholic fatty liver disease [Unknown]
  - Arthralgia [Unknown]
  - Obesity [Unknown]
  - Hypertension [Unknown]
  - Hypoglycaemia [Unknown]
  - Blood glucose fluctuation [Unknown]
  - Myocardial infarction [Unknown]
  - Coronary artery disease [Unknown]
  - Product dose omission issue [Unknown]
  - Angina pectoris [Unknown]
  - Mood swings [Unknown]
  - Non-alcoholic steatohepatitis [Unknown]
  - Cerebrovascular accident [Unknown]
